FAERS Safety Report 10494546 (Version 1)
Quarter: 2014Q4

REPORT INFORMATION
  Report Type: Spontaneous
  Country: US (occurrence: US)
  Receive Date: 20141003
  Receipt Date: 20141003
  Transmission Date: 20150528
  Serious: Yes (Other)
  Sender: FDA-Public Use
  Company Number: US-PERRIGO-14US009558

PATIENT
  Age: 10 Year
  Sex: Male
  Weight: 52.61 kg

DRUGS (3)
  1. CETIRIZINE [Suspect]
     Active Substance: CETIRIZINE HYDROCHLORIDE
     Dosage: 5 MG, SINGLE
     Route: 048
     Dates: start: 20140920, end: 20140920
  2. CETIRIZINE [Suspect]
     Active Substance: CETIRIZINE HYDROCHLORIDE
     Indication: SEASONAL ALLERGY
     Dosage: 5 MG, SINGLE
     Route: 048
     Dates: start: 201404, end: 201404
  3. CETIRIZINE [Suspect]
     Active Substance: CETIRIZINE HYDROCHLORIDE
     Indication: NASAL CONGESTION
     Dosage: 5 MG, SINGLE
     Route: 048
     Dates: start: 20140815, end: 20140815

REACTIONS (8)
  - Drooling [Recovered/Resolved]
  - Musculoskeletal stiffness [Recovered/Resolved]
  - Eye movement disorder [Recovered/Resolved]
  - Muscle twitching [Recovered/Resolved]
  - Excessive eye blinking [Recovered/Resolved]
  - Fatigue [Recovered/Resolved]
  - Seizure [Recovered/Resolved]
  - Expired product administered [Recovered/Resolved]

NARRATIVE: CASE EVENT DATE: 201404
